FAERS Safety Report 23006146 (Version 3)
Quarter: 2024Q4

REPORT INFORMATION
  Report Type: Spontaneous
  Country: IN (occurrence: IN)
  Receive Date: 20230929
  Receipt Date: 20241021
  Transmission Date: 20250114
  Serious: Yes (Hospitalization, Other)
  Sender: Haleon PLC
  Company Number: IN-GLAXOSMITHKLINE-INCH2023APC040364

PATIENT
  Age: 30 Year
  Sex: Female

DRUGS (4)
  1. DICLOFENAC [Suspect]
     Active Substance: DICLOFENAC
     Indication: Sacroiliitis
     Route: 065
  2. DICLOFENAC [Suspect]
     Active Substance: DICLOFENAC
     Indication: Back pain
  3. BUDESONIDE [Suspect]
     Active Substance: BUDESONIDE
     Indication: Pulmonary oedema
     Dosage: UNK
  4. LASIX [Suspect]
     Active Substance: FUROSEMIDE
     Indication: Pulmonary oedema
     Dosage: UNK
     Route: 042

REACTIONS (13)
  - Chest discomfort [Unknown]
  - Contraindicated product administered [Unknown]
  - Acute pulmonary oedema [Unknown]
  - Premature delivery [Unknown]
  - Tachycardia [Unknown]
  - Tricuspid valve incompetence [Unknown]
  - Oedema peripheral [Unknown]
  - Pericardial effusion [Unknown]
  - Maternal exposure during pregnancy [Unknown]
  - Dyspnoea [Unknown]
  - Mitral valve incompetence [Unknown]
  - Oligohydramnios [Unknown]
  - Placental insufficiency [Unknown]
